FAERS Safety Report 9356212 (Version 2)
Quarter: 2013Q3

REPORT INFORMATION
  Report Type: Spontaneous
  Country: PT (occurrence: PT)
  Receive Date: 20130619
  Receipt Date: 20130701
  Transmission Date: 20140515
  Serious: Yes (Other)
  Sender: FDA-Public Use
  Company Number: PT-009507513-1306PRT008285

PATIENT
  Age: 48 Year
  Sex: Female

DRUGS (2)
  1. FOSAVANCE [Suspect]
     Indication: OSTEOPENIA
     Dosage: UNK, WEEKLY
     Route: 048
     Dates: start: 201306, end: 201306
  2. WARFARIN [Concomitant]
     Indication: HYPERCOAGULATION
     Dosage: UNK

REACTIONS (2)
  - Anaphylactic shock [Recovered/Resolved]
  - Abdominal pain upper [Recovered/Resolved]
